FAERS Safety Report 8233378-1 (Version None)
Quarter: 2012Q1

REPORT INFORMATION
  Report Type: 
  Country: None (occurrence: None)
  Receive Date: 20120323
  Receipt Date: 20120323
  Transmission Date: 20120608
  Serious: No
  Sender: FDA-Public Use
  Company Number: None

PATIENT

DRUGS (4)
  1. HEPARIN SODIUM [Suspect]
     Dosage: INJECTABLE IV BAG
     Route: 042
  2. HESPAN HESPAN [Suspect]
     Dosage: INJECTABLE  6% 500 ML IV BAG
     Route: 042
  3. HEPARIN SODIUM [Suspect]
     Dosage: INJECTABLE IV BAG
     Route: 042
  4. HEPARIN SODIUM [Suspect]
     Dosage: INJECTABLE IV BAG
     Route: 042

REACTIONS (3)
  - INTERCEPTED DRUG ADMINISTRATION ERROR [None]
  - MEDICATION ERROR [None]
  - CIRCUMSTANCE OR INFORMATION CAPABLE OF LEADING TO MEDICATION ERROR [None]
